APPROVED DRUG PRODUCT: ERYTHROMYCIN ETHYLSUCCINATE
Active Ingredient: ERYTHROMYCIN ETHYLSUCCINATE
Strength: EQ 400MG BASE
Dosage Form/Route: TABLET;ORAL
Application: A061904 | Product #001 | TE Code: BX
Applicant: PHARMOBEDIENT CONSULTING LLC
Approved: Approved Prior to Jan 1, 1982 | RLD: No | RS: Yes | Type: RX